FAERS Safety Report 9573257 (Version 1)
Quarter: 2013Q3

REPORT INFORMATION
  Report Type: Spontaneous
  Country: US (occurrence: None)
  Receive Date: 20130930
  Receipt Date: 20130930
  Transmission Date: 20140515
  Serious: Yes (Other)
  Sender: FDA-Public Use
  Company Number: None

PATIENT
  Age: 84 Year
  Sex: Female

DRUGS (4)
  1. EYLEA [Suspect]
     Indication: MACULAR DEGENERATION
     Dates: start: 20130808, end: 20130808
  2. LEVOTHYROXINE [Concomitant]
  3. PREVACID [Concomitant]
  4. PRAVASTATIN [Concomitant]

REACTIONS (2)
  - Vitritis [None]
  - Uveitis [None]
